FAERS Safety Report 9779079 (Version 3)
Quarter: 2014Q1

REPORT INFORMATION
  Report Type: Spontaneous
  Country: US (occurrence: US)
  Receive Date: 20131223
  Receipt Date: 20140123
  Transmission Date: 20141002
  Serious: Yes (Other)
  Sender: FDA-Public Use
  Company Number: US-PFIZER INC-2013363400

PATIENT
  Age: 65 Year
  Sex: Female
  Weight: 72.1 kg

DRUGS (24)
  1. VIAGRA [Suspect]
     Indication: CARDIAC FAILURE
     Dosage: UNK, 3X/DAY
     Route: 048
     Dates: start: 201303, end: 201303
  2. VIAGRA [Suspect]
     Indication: PULMONARY HYPERTENSION
  3. REVATIO [Suspect]
     Indication: PULMONARY ARTERIAL HYPERTENSION
     Dosage: 20 MG, 3X/DAY
     Route: 048
     Dates: start: 201303
  4. PROGRAF [Concomitant]
     Dosage: UNK
  5. CELLCEPT [Concomitant]
     Dosage: UNK
  6. PREDNISONE [Concomitant]
     Dosage: UNK
  7. VALCYTE [Concomitant]
     Dosage: UNK
  8. BACTRIM [Concomitant]
     Dosage: UNK
  9. CLOTRIMAZOLE [Concomitant]
     Dosage: UNK
  10. PACERONE [Concomitant]
     Dosage: 50 MG, DAILY
     Route: 048
  11. ASPIRIN [Concomitant]
     Dosage: 81 MG, DAILY
     Route: 048
  12. CALTRATE 600+D [Concomitant]
     Dosage: 1 DF, DAILY
     Route: 048
  13. COREG [Concomitant]
     Dosage: 3.125 MG, 2X/DAY
     Route: 048
  14. PROZAC [Concomitant]
     Dosage: 20 MG, DAILY
     Route: 048
  15. LASIX [Concomitant]
     Dosage: 20 MG, 2X/DAY
     Route: 048
  16. KEPPRA [Concomitant]
     Indication: CONVULSION
     Dosage: 1000 MG, 3X/DAY
     Route: 048
  17. KEPPRA [Concomitant]
     Indication: PARTIAL SEIZURES
  18. PRINIVIL [Concomitant]
     Dosage: 7.5 MG, DAILY (5 MG TABLET 1 1/2 TABLETS EVERY DAY)
  19. ZESTRIL [Concomitant]
     Dosage: 7.5 MG, DAILY (5 MG TABLET1 1/2 TABLETS EVERY DAY)
  20. PRIMACOR [Concomitant]
     Dosage: 27.1 UG/MIN, (INJECT 27.1 MCG/ MIN INTO VEIN CONTINUOUS)
     Route: 042
  21. ZOCOR [Concomitant]
     Dosage: 10 MG, 1X/DAY (NIGHTLY)
     Route: 048
  22. ALDACTONE [Concomitant]
     Dosage: 25 MG, DAILY
     Route: 048
  23. CO Q-10 [Concomitant]
     Dosage: 200 MG, DAILY
     Route: 048
  24. THERA VITAMIN [Concomitant]
     Dosage: 1 DF, DAILY

REACTIONS (6)
  - Cardiac failure [Unknown]
  - Blood disorder [Unknown]
  - Depression [Unknown]
  - Memory impairment [Unknown]
  - Uterine disorder [Unknown]
  - Off label use [Unknown]
